FAERS Safety Report 24415423 (Version 1)
Quarter: 2024Q4

REPORT INFORMATION
  Report Type: Spontaneous
  Country: DE (occurrence: DE)
  Receive Date: 20241009
  Receipt Date: 20241009
  Transmission Date: 20250115
  Serious: Yes (Other)
  Sender: AUROBINDO
  Company Number: DE-002147023-NVSC2024DE187266

PATIENT
  Sex: Female

DRUGS (6)
  1. FULVESTRANT [Suspect]
     Active Substance: FULVESTRANT
     Indication: Hormone receptor positive HER2 negative breast cancer
     Dosage: 500 MILLIGRAM, ONCE A DAY (DAILY DOSE,EVERY FOUR WEEKS)
     Route: 030
     Dates: start: 20200121, end: 20231219
  2. FULVESTRANT [Suspect]
     Active Substance: FULVESTRANT
     Dosage: 500 MILLIGRAM, ONCE A DAY (DAILY DOSE,EVERY FOUR WEEKS)
     Route: 030
     Dates: start: 20240213, end: 20240702
  3. FULVESTRANT [Suspect]
     Active Substance: FULVESTRANT
     Dosage: 500 MILLIGRAM, ONCE A DAY (DAILY DOSE,EVERY FOUR WEEKS)
     Route: 030
     Dates: start: 20240902
  4. KISQALI [Suspect]
     Active Substance: RIBOCICLIB
     Indication: Hormone receptor positive HER2 negative breast cancer
     Dosage: 600 MILLIGRAM, ONCE A DAY (SCHEMA 21 DAYS INTAKE, 7 DAYS PAUSE)
     Route: 048
     Dates: start: 20240213, end: 20240229
  5. KISQALI [Suspect]
     Active Substance: RIBOCICLIB
     Dosage: 600 MILLIGRAM, ONCE A DAY  (SCHEMA 21 DAYS INTAKE, 7 DAYS PAUSE)
     Route: 048
     Dates: start: 20200218, end: 20240110
  6. KISQALI [Suspect]
     Active Substance: RIBOCICLIB
     Dosage: 600 MILLIGRAM, ONCE A DAY (SCHEMA 21 DAYS INTAKE, 7 DAYS PAUSE)
     Route: 048
     Dates: start: 20240410, end: 20240801

REACTIONS (2)
  - Arthralgia [Recovered/Resolved]
  - Osteoarthritis [Recovered/Resolved]

NARRATIVE: CASE EVENT DATE: 20231019
